FAERS Safety Report 12438673 (Version 1)
Quarter: 2016Q2

REPORT INFORMATION
  Report Type: Spontaneous
  Country: US (occurrence: US)
  Receive Date: 20160606
  Receipt Date: 20160606
  Transmission Date: 20160815
  Serious: Yes (Other)
  Sender: FDA-Public Use
  Company Number: US-TEVA-661591USA

PATIENT
  Age: 64 Year
  Sex: Female

DRUGS (1)
  1. CLONAZEPAM. [Suspect]
     Active Substance: CLONAZEPAM
     Indication: EPILEPSY
     Dosage: 3 MILLIGRAM DAILY;
     Route: 048
     Dates: start: 20141126

REACTIONS (9)
  - Product label issue [Unknown]
  - Seizure [Unknown]
  - Product container issue [Unknown]
  - Drug ineffective [Unknown]
  - Drug dispensing error [Unknown]
  - Product tampering [Unknown]
  - Feeling abnormal [Unknown]
  - Sluggishness [Unknown]
  - Fatigue [Unknown]

NARRATIVE: CASE EVENT DATE: 201411
